FAERS Safety Report 6602059-X (Version None)
Quarter: 2010Q1

REPORT INFORMATION
  Report Type: 
  Country: None (occurrence: None)
  Receive Date: 20100225
  Receipt Date: 20100211
  Transmission Date: 20100710
  Serious: Yes (Hospitalization)
  Sender: FDA-Public Use
  Company Number: PHHO2009DE15152

PATIENT
  Sex: Male
  Weight: 53 kg

DRUGS (3)
  1. CARBAMAZEPINE [Suspect]
     Indication: PARTIAL SEIZURES
     Dosage: 200 MG
     Route: 048
     Dates: start: 20081201, end: 20090101
  2. CARBAMAZEPINE [Suspect]
     Dosage: 400 MG
     Route: 048
  3. CARBAMAZEPINE [Suspect]
     Dosage: 600 MG
     Route: 048
     Dates: start: 20090122

REACTIONS (5)
  - FACIAL BONES FRACTURE [None]
  - FALL [None]
  - RADIUS FRACTURE [None]
  - SPINAL CORD DISORDER [None]
  - TRAUMATIC BRAIN INJURY [None]
